FAERS Safety Report 4897266-0 (Version None)
Quarter: 2005Q4

REPORT INFORMATION
  Report Type: 
  Country: None (occurrence: None)
  Receive Date: 20051223
  Receipt Date: 20051024
  Transmission Date: 20060501
  Serious: No
  Sender: FDA-Public Use
  Company Number: 05P-163-0314862-00

PATIENT
  Age: 42 Year
  Sex: Male
  Weight: 72.5755 kg

DRUGS (5)
  1. HUMIRA [Suspect]
     Indication: RHEUMATOID ARTHRITIS
     Dosage: 40 MG, 1 IN 2 WK, SUBCUTANEOUS
     Route: 058
     Dates: start: 20040501
  2. PREDNISONE [Concomitant]
  3. LORTAB ES [Concomitant]
  4. NORTRIPTYLINE HCL [Concomitant]
  5. TRANZADONE [Concomitant]

REACTIONS (3)
  - FUNGAL INFECTION [None]
  - HYPOAESTHESIA [None]
  - PARAESTHESIA [None]
